FAERS Safety Report 5641975-2 (Version None)
Quarter: 2008Q1

REPORT INFORMATION
  Report Type: 
  Country: None (occurrence: None)
  Receive Date: 20080227
  Receipt Date: 20080215
  Transmission Date: 20080703
  Serious: Yes (Other)
  Sender: FDA-Public Use
  Company Number: FR-PFIZER INC-2007106696

PATIENT
  Sex: Male
  Weight: 70 kg

DRUGS (8)
  1. CHANTIX [Suspect]
     Indication: SMOKING CESSATION THERAPY
     Route: 048
     Dates: start: 20071113, end: 20071117
  2. HELICIDINE [Concomitant]
     Route: 048
     Dates: start: 20071113, end: 20071116
  3. ALL OTHER THERAPEUTIC PRODUCTS [Concomitant]
     Route: 058
     Dates: start: 20071102, end: 20071102
  4. ALL OTHER THERAPEUTIC PRODUCTS [Concomitant]
     Route: 058
     Dates: start: 20071102, end: 20071102
  5. ZESTRIL [Concomitant]
     Route: 048
  6. SPIRIVA [Concomitant]
     Route: 055
  7. SERETIDE [Concomitant]
  8. FLUTICASONE PROPIONATE [Concomitant]
     Route: 055

REACTIONS (2)
  - DERMATITIS [None]
  - TESTICULAR OEDEMA [None]
